FAERS Safety Report 8906317 (Version 2)
Quarter: 2012Q4

REPORT INFORMATION
  Report Type: Spontaneous
  Country: US (occurrence: None)
  Receive Date: 20121107
  Receipt Date: 20121123
  Transmission Date: 20130627
  Serious: Yes (Hospitalization, Disabling, Other)
  Sender: FDA-Public Use
  Company Number: CLCY20120160

PATIENT
  Age: 75 Year
  Sex: Female
  Weight: 67.13 kg

DRUGS (8)
  1. COLCRYS [Suspect]
     Indication: GOUT FLARE
     Route: 048
     Dates: start: 2011
  2. COLCHICINE [Suspect]
     Indication: DRUG USE FOR UNKNOWN INDICATION
  3. ALBUTEROL [Concomitant]
  4. HYDRALAZINE [Concomitant]
  5. LORAZEPAM [Concomitant]
  6. METOPROLOL [Concomitant]
  7. OXYCODONE [Concomitant]
  8. PAXIL [Concomitant]

REACTIONS (5)
  - Renal failure chronic [None]
  - Weight decreased [None]
  - Dialysis [None]
  - Nausea [None]
  - Pulse absent [None]
